FAERS Safety Report 21631467 (Version 1)
Quarter: 2022Q4

REPORT INFORMATION
  Report Type: Spontaneous
  Country: US (occurrence: US)
  Receive Date: 20221123
  Receipt Date: 20221123
  Transmission Date: 20230112
  Serious: Yes (Other)
  Sender: FDA-Public Use
  Company Number: US-ORGANON-O2211USA001517

PATIENT
  Sex: Female

DRUGS (2)
  1. DULERA [Suspect]
     Active Substance: FORMOTEROL FUMARATE DIHYDRATE\MOMETASONE FUROATE
     Dosage: UNK
     Dates: start: 2022, end: 20221112
  2. ALBUTEROL [Concomitant]
     Active Substance: ALBUTEROL
     Dosage: INHALER

REACTIONS (11)
  - Syncope [Recovering/Resolving]
  - Illness [Recovering/Resolving]
  - Hypoaesthesia [Recovering/Resolving]
  - Functional gastrointestinal disorder [Recovering/Resolving]
  - Morbid thoughts [Recovering/Resolving]
  - Menopausal symptoms [Recovering/Resolving]
  - Hot flush [Recovering/Resolving]
  - Muscle spasms [Recovering/Resolving]
  - Dizziness [Recovering/Resolving]
  - Dysphonia [Recovering/Resolving]
  - Pruritus [Recovering/Resolving]

NARRATIVE: CASE EVENT DATE: 20220101
